FAERS Safety Report 8500473-9 (Version None)
Quarter: 2012Q3

REPORT INFORMATION
  Report Type: 
  Country: None (occurrence: None)
  Receive Date: 20120710
  Receipt Date: 20120627
  Transmission Date: 20120928
  Serious: No
  Sender: FDA-Public Use
  Company Number: US-ASTRAZENECA-2011SE25173

PATIENT
  Age: 20 Year
  Sex: Female
  Weight: 90.7 kg

DRUGS (4)
  1. FLUOXETINE [Concomitant]
  2. SEROQUEL [Suspect]
     Indication: BIPOLAR DISORDER
     Route: 048
     Dates: start: 20080101
  3. DEPAKOTE [Concomitant]
  4. SEROQUEL [Suspect]
     Indication: DEPRESSION
     Route: 048
     Dates: start: 20080101

REACTIONS (3)
  - INSOMNIA [None]
  - HALLUCINATION, AUDITORY [None]
  - DRUG DOSE OMISSION [None]
